FAERS Safety Report 18617676 (Version 1)
Quarter: 2020Q4

REPORT INFORMATION
  Report Type: Spontaneous
  Country: US (occurrence: US)
  Receive Date: 20201214
  Receipt Date: 20201214
  Transmission Date: 20210114
  Serious: No
  Sender: FDA-Public Use
  Company Number: None

PATIENT
  Sex: Female

DRUGS (1)
  1. NUCALA [Suspect]
     Active Substance: MEPOLIZUMAB
     Dosage: ?          OTHER FREQUENCY:EVERY4WEEKS;?
     Route: 058
     Dates: start: 20190715

REACTIONS (3)
  - Idiopathic urticaria [None]
  - Asthma [None]
  - Vaginal infection [None]
